FAERS Safety Report 10736062 (Version 5)
Quarter: 2017Q2

REPORT INFORMATION
  Report Type: Spontaneous
  Country: US (occurrence: US)
  Receive Date: 20150126
  Receipt Date: 20170424
  Transmission Date: 20170829
  Serious: Yes (Other)
  Sender: FDA-Public Use
  Company Number: US-JNJFOC-20150116340

PATIENT
  Age: 8 Year
  Sex: Male

DRUGS (12)
  1. RISPERDAL [Suspect]
     Active Substance: RISPERIDONE
     Indication: SEXUALLY INAPPROPRIATE BEHAVIOUR
     Route: 048
     Dates: start: 20050501
  2. RISPERDAL [Suspect]
     Active Substance: RISPERIDONE
     Indication: SEXUALLY INAPPROPRIATE BEHAVIOUR
     Route: 048
     Dates: start: 20050504, end: 20051016
  3. RISPERDAL [Suspect]
     Active Substance: RISPERIDONE
     Indication: ATTENTION DEFICIT/HYPERACTIVITY DISORDER
     Route: 048
     Dates: start: 20050501
  4. RISPERDAL [Suspect]
     Active Substance: RISPERIDONE
     Indication: TIC
     Route: 048
     Dates: start: 20050919, end: 20051019
  5. RISPERDAL [Suspect]
     Active Substance: RISPERIDONE
     Indication: ATTENTION DEFICIT/HYPERACTIVITY DISORDER
     Route: 048
     Dates: start: 20050504, end: 20051016
  6. RISPERDAL [Suspect]
     Active Substance: RISPERIDONE
     Indication: ATTENTION DEFICIT/HYPERACTIVITY DISORDER
     Route: 048
     Dates: start: 20050919, end: 20051019
  7. RISPERDAL [Suspect]
     Active Substance: RISPERIDONE
     Indication: TIC
     Route: 048
     Dates: start: 20050504, end: 20051016
  8. RISPERDAL [Suspect]
     Active Substance: RISPERIDONE
     Indication: TIC
     Route: 048
     Dates: start: 20050501
  9. RISPERDAL [Suspect]
     Active Substance: RISPERIDONE
     Indication: TIC
     Route: 048
     Dates: start: 20050826, end: 20060102
  10. RISPERDAL [Suspect]
     Active Substance: RISPERIDONE
     Indication: SEXUALLY INAPPROPRIATE BEHAVIOUR
     Route: 048
     Dates: start: 20050919, end: 20051019
  11. RISPERDAL [Suspect]
     Active Substance: RISPERIDONE
     Indication: SEXUALLY INAPPROPRIATE BEHAVIOUR
     Route: 048
     Dates: start: 20050826, end: 20060102
  12. RISPERDAL [Suspect]
     Active Substance: RISPERIDONE
     Indication: ATTENTION DEFICIT/HYPERACTIVITY DISORDER
     Route: 048
     Dates: start: 20050826, end: 20060102

REACTIONS (6)
  - Abnormal weight gain [Unknown]
  - Product use in unapproved indication [Unknown]
  - Gynaecomastia [Unknown]
  - Drug ineffective [Unknown]
  - Akathisia [Unknown]
  - Off label use [Unknown]

NARRATIVE: CASE EVENT DATE: 2005
